FAERS Safety Report 19347726 (Version 1)
Quarter: 2021Q2

REPORT INFORMATION
  Report Type: Spontaneous
  Country: US (occurrence: US)
  Receive Date: 20210528
  Receipt Date: 20210528
  Transmission Date: 20210717
  Serious: Yes (Death)
  Sender: FDA-Public Use
  Company Number: None

PATIENT
  Sex: Female

DRUGS (35)
  1. GLYBURIDE. [Concomitant]
     Active Substance: GLYBURIDE
  2. MONTELUKAST [Concomitant]
     Active Substance: MONTELUKAST SODIUM
  3. SODIUM BICAR [Concomitant]
  4. BASAGLAR [Concomitant]
     Active Substance: INSULIN GLARGINE
  5. CLOPIDOGREL [Concomitant]
     Active Substance: CLOPIDOGREL BISULFATE
  6. LEVOTHYROXIN [Concomitant]
     Active Substance: LEVOTHYROXINE
  7. ACETAMIN [Concomitant]
     Active Substance: ACETAMINOPHEN
  8. CLINDAMYCIN. [Concomitant]
     Active Substance: CLINDAMYCIN
  9. MULTIVITAMIN ADULTS [Concomitant]
  10. RAYALDEE [Concomitant]
     Active Substance: CALCIFEDIOL
  11. FOLIC ACID. [Concomitant]
     Active Substance: FOLIC ACID
  12. GEMFIBROZIL. [Concomitant]
     Active Substance: GEMFIBROZIL
  13. MORPHINE SUL ER [Concomitant]
  14. SUCRALFATE. [Concomitant]
     Active Substance: SUCRALFATE
  15. TOPIRAMATE. [Concomitant]
     Active Substance: TOPIRAMATE
  16. HUMIRA [Suspect]
     Active Substance: ADALIMUMAB
     Indication: CROHN^S DISEASE
     Route: 058
     Dates: start: 20190129
  17. FAMOTIDINE. [Concomitant]
     Active Substance: FAMOTIDINE
  18. FLUTICASONE SPR [Concomitant]
  19. MIDODRINE [Concomitant]
     Active Substance: MIDODRINE
  20. NITROSTAT [Concomitant]
     Active Substance: NITROGLYCERIN
  21. PAIN RELIEF CRE [Concomitant]
  22. ALBUTEROL NEB [Concomitant]
     Active Substance: ALBUTEROL
  23. AMOX/K CLAV [Concomitant]
     Active Substance: AMOXICILLIN\CLAVULANATE POTASSIUM
  24. LISINOPRIL. [Concomitant]
     Active Substance: LISINOPRIL
  25. ATORVASTATIN [Concomitant]
     Active Substance: ATORVASTATIN
  26. BENADRYL [Concomitant]
     Active Substance: DIPHENHYDRAMINE HYDROCHLORIDE
  27. COLACE [Concomitant]
     Active Substance: DOCUSATE SODIUM
  28. VITAMIN D3 [Concomitant]
     Active Substance: CHOLECALCIFEROL
  29. DOXYCYC MONO [Concomitant]
     Active Substance: DOXYCYCLINE
  30. HYDORCO/APAP [Concomitant]
  31. LOSARTAN POT [Concomitant]
     Active Substance: LOSARTAN POTASSIUM
  32. METORPOL SUC ER [Concomitant]
  33. NYSTOP [Concomitant]
     Active Substance: NYSTATIN
  34. PROAIR HFA [Concomitant]
     Active Substance: ALBUTEROL SULFATE
  35. VELTASSA ( OTHER PHARMACY) [Concomitant]

REACTIONS (1)
  - Death [None]
